FAERS Safety Report 9844581 (Version 1)
Quarter: 2014Q1

REPORT INFORMATION
  Report Type: Spontaneous
  Country: US (occurrence: None)
  Receive Date: 20140123
  Receipt Date: 20140123
  Transmission Date: 20141002
  Serious: Yes (Hospitalization)
  Sender: FDA-Public Use
  Company Number: 2014AP000257

PATIENT
  Age: 50 Year
  Sex: Male

DRUGS (3)
  1. AMLODIPINE BESYLATE TABLETS [Suspect]
     Indication: OVERDOSE
     Route: 048
  2. HYDROCHLOROTHIAZIDE [Suspect]
     Indication: OVERDOSE
     Route: 048
  3. LISINOPRIL TABLETS [Suspect]
     Indication: OVERDOSE
     Route: 048

REACTIONS (6)
  - Shock [None]
  - Respiratory failure [None]
  - Suicide attempt [None]
  - Overdose [None]
  - Depressed level of consciousness [None]
  - Ejection fraction decreased [None]
